FAERS Safety Report 18092524 (Version 2)
Quarter: 2020Q3

REPORT INFORMATION
  Report Type: Spontaneous
  Country: US (occurrence: US)
  Receive Date: 20200730
  Receipt Date: 20200813
  Transmission Date: 20201103
  Serious: No
  Sender: FDA-Public Use
  Company Number: US-PFIZER INC-2020286062

PATIENT
  Age: 31 Year
  Sex: Female

DRUGS (3)
  1. PROCARDIA [Suspect]
     Active Substance: NIFEDIPINE
     Indication: BLOOD PRESSURE INCREASED
     Dosage: 30 MG, SINGLE
     Dates: start: 20200410
  2. MAGNESIUM SULFATE. [Suspect]
     Active Substance: MAGNESIUM SULFATE
     Indication: SEIZURE PROPHYLAXIS
     Dosage: 4 G (LOADING DOSE)
     Dates: start: 20200410
  3. MAGNESIUM SULFATE. [Suspect]
     Active Substance: MAGNESIUM SULFATE
     Dosage: 2 G/HOUR
     Dates: start: 20200410

REACTIONS (4)
  - Asthenopia [Recovered/Resolved]
  - Asthenia [Recovered/Resolved]
  - Speech disorder [Recovered/Resolved]
  - Dyspnoea [Recovered/Resolved]

NARRATIVE: CASE EVENT DATE: 20200410
